FAERS Safety Report 20338650 (Version 3)
Quarter: 2022Q1

REPORT INFORMATION
  Report Type: Report from Study
  Country: IN (occurrence: IN)
  Receive Date: 20220116
  Receipt Date: 20220214
  Transmission Date: 20220423
  Serious: Yes (Hospitalization)
  Sender: FDA-Public Use
  Company Number: IN-TEVA-2022-IN-1997752

PATIENT
  Age: 39 Year
  Sex: Male
  Weight: 73.8 kg

DRUGS (2)
  1. CLOBAZAM [Suspect]
     Active Substance: CLOBAZAM
     Dosage: 0 MILLIGRAM DAILY;
  2. CLOBAZAM [Suspect]
     Active Substance: CLOBAZAM
     Indication: Anxiety
     Dosage: REFERENCE PRODUCT
     Route: 048
     Dates: start: 20220105, end: 20220105

REACTIONS (1)
  - Dizziness [Recovered/Resolved]

NARRATIVE: CASE EVENT DATE: 20220105
